FAERS Safety Report 13164050 (Version 1)
Quarter: 2017Q1

REPORT INFORMATION
  Report Type: Spontaneous
  Country: US (occurrence: US)
  Receive Date: 20170130
  Receipt Date: 20170130
  Transmission Date: 20170428
  Serious: Yes (Hospitalization)
  Sender: FDA-Public Use
  Company Number: US-LPDUSPRD-20170054

PATIENT
  Age: 15 Year
  Sex: Male

DRUGS (2)
  1. CALCITRIOL INJECTION, USP (0132-25) [Suspect]
     Active Substance: CALCITRIOL
     Dosage: 0.75 ??G/DAY
     Route: 065
  2. CALCIUM CARBONATE. [Suspect]
     Active Substance: CALCIUM CARBONATE
     Dosage: 3G/DAY IN DIVIDED DOSES
     Route: 065

REACTIONS (1)
  - Milk-alkali syndrome [Recovered/Resolved]
